FAERS Safety Report 9848883 (Version 1)
Quarter: 2013Q4

REPORT INFORMATION
  Report Type: Spontaneous
  Country: US (occurrence: None)
  Receive Date: 20131226
  Receipt Date: 20131226
  Transmission Date: 20140711
  Serious: Yes (Life-Threatening)
  Sender: FDA-Public Use
  Company Number: PHEH2013US005536

PATIENT
  Age: 32 Year
  Sex: Male

DRUGS (1)
  1. TRILEPTAL (OXCARBAZEPINE) UNKNOWN [Suspect]

REACTIONS (5)
  - Suicidal ideation [None]
  - Palpitations [None]
  - Facial pain [None]
  - Initial insomnia [None]
  - Panic attack [None]
